FAERS Safety Report 15991877 (Version 4)
Quarter: 2023Q1

REPORT INFORMATION
  Report Type: Report from Study
  Country: DE (occurrence: DE)
  Receive Date: 20190221
  Receipt Date: 20230117
  Transmission Date: 20230417
  Serious: Yes (Hospitalization, Other)
  Sender: FDA-Public Use
  Company Number: DE-UCBSA-2018016109

PATIENT
  Sex: Female

DRUGS (10)
  1. METHOTREXATE [Suspect]
     Active Substance: METHOTREXATE
     Indication: Rheumatoid arthritis
     Dosage: 25 MILLIGRAM
     Route: 065
     Dates: end: 2017
  2. METHOTREXATE [Suspect]
     Active Substance: METHOTREXATE
     Dosage: 20 MILLIGRAM, QW (20 MG, WEEKLY (QW))
     Route: 065
     Dates: start: 2017
  3. CERTOLIZUMAB PEGOL [Suspect]
     Active Substance: CERTOLIZUMAB PEGOL
     Indication: Rheumatoid arthritis
     Dosage: 400 MILLIGRAM, STOP DATE (2016)
     Route: 065
     Dates: start: 201603
  4. CERTOLIZUMAB PEGOL [Suspect]
     Active Substance: CERTOLIZUMAB PEGOL
     Dosage: 200 MG, EV 2 WEEKS(QOW)
     Route: 058
     Dates: start: 2016, end: 20210722
  5. OLUMIANT [Suspect]
     Active Substance: BARICITINIB
     Indication: Rheumatoid arthritis
     Dosage: 4 MILLIGRAM, QD (4 MILLIGRAM, ONCE DAILY (QD))(START DATE: 26-FEB-2022)
     Route: 065
  6. OLUMIANT [Suspect]
     Active Substance: BARICITINIB
     Dosage: 4 MILLIGRAM, QD (4 MILLIGRAM, ONCE DAILY (QD))(START: 1-SEP-2021)
     Route: 065
  7. CHOLECALCIFEROL [Concomitant]
     Active Substance: CHOLECALCIFEROL
     Dosage: UNK
     Route: 065
  8. ZOPICLONE [Concomitant]
     Active Substance: ZOPICLONE
     Dosage: UNK
     Route: 065
  9. IBUPROFEN [Concomitant]
     Active Substance: IBUPROFEN
     Dosage: UNK
     Route: 065
  10. FOLIC ACID [Concomitant]
     Active Substance: FOLIC ACID
     Dosage: UNK
     Route: 065

REACTIONS (8)
  - Rheumatoid arthritis [Recovered/Resolved]
  - Fibromyalgia [Recovered/Resolved]
  - Bursitis [Recovered/Resolved]
  - Carpal tunnel syndrome [Unknown]
  - Nasopharyngitis [Recovered/Resolved]
  - Rheumatoid nodule [Unknown]
  - Impaired healing [Recovered/Resolved]
  - Diarrhoea [Recovered/Resolved]

NARRATIVE: CASE EVENT DATE: 20171215
